FAERS Safety Report 6169941-1 (Version None)
Quarter: 2009Q2

REPORT INFORMATION
  Report Type: 
  Country: None (occurrence: None)
  Receive Date: 20090428
  Receipt Date: 20090416
  Transmission Date: 20091009
  Serious: Yes (Other)
  Sender: FDA-Public Use
  Company Number: ZA-PFIZER INC-2009200618

PATIENT

DRUGS (2)
  1. LYRICA [Suspect]
     Indication: NEURALGIA
     Dosage: FREQUENCY: BD, DAILY
     Route: 048
     Dates: start: 20081001
  2. LYRICA [Suspect]
     Dosage: FREQUENCY: BD, DAILY
     Route: 048
     Dates: end: 20090101

REACTIONS (2)
  - ALTERED VISUAL DEPTH PERCEPTION [None]
  - VISION BLURRED [None]
